FAERS Safety Report 11334920 (Version 8)
Quarter: 2019Q3

REPORT INFORMATION
  Report Type: Report from Study
  Country: CA (occurrence: CA)
  Receive Date: 20150804
  Receipt Date: 20190924
  Transmission Date: 20191004
  Serious: Yes (Hospitalization, Other)
  Sender: FDA-Public Use
  Company Number: CA-ROCHE-1088995

PATIENT
  Age: 77 Year
  Sex: Female
  Weight: 60 kg

DRUGS (5)
  1. ACTEMRA [Suspect]
     Active Substance: TOCILIZUMAB
     Dosage: INFUSION# 73
     Route: 042
     Dates: start: 20180307
  2. IRON [Concomitant]
     Active Substance: IRON
     Indication: BLOOD IRON DECREASED
     Dosage: INFUSIONS MONTHLY AND ORAL DAILY
     Route: 042
     Dates: start: 201812
  3. ACTEMRA [Suspect]
     Active Substance: TOCILIZUMAB
     Route: 042
     Dates: start: 20170112
  4. ACTEMRA [Suspect]
     Active Substance: TOCILIZUMAB
     Route: 042
     Dates: start: 20180926
  5. ACTEMRA [Suspect]
     Active Substance: TOCILIZUMAB
     Indication: RHEUMATOID ARTHRITIS
     Route: 042
     Dates: start: 20120410

REACTIONS (42)
  - Arthralgia [Not Recovered/Not Resolved]
  - Blood pressure systolic abnormal [Unknown]
  - Constipation [Unknown]
  - Lower respiratory tract infection [Not Recovered/Not Resolved]
  - Lung disorder [Recovering/Resolving]
  - Blood pressure fluctuation [Unknown]
  - Back pain [Not Recovered/Not Resolved]
  - Spinal compression fracture [Unknown]
  - Arthritis [Recovered/Resolved]
  - Diarrhoea [Unknown]
  - Chronic obstructive pulmonary disease [Unknown]
  - Constipation [Recovered/Resolved]
  - Therapeutic product effect decreased [Unknown]
  - Inflammation [Not Recovered/Not Resolved]
  - Nasopharyngitis [Not Recovered/Not Resolved]
  - Lower respiratory tract infection [Recovered/Resolved]
  - Blood pressure diastolic decreased [Unknown]
  - Mobility decreased [Not Recovered/Not Resolved]
  - Fatigue [Not Recovered/Not Resolved]
  - Blood pressure systolic increased [Unknown]
  - Cardiac disorder [Recovering/Resolving]
  - Weight decreased [Recovering/Resolving]
  - Intentional product use issue [Unknown]
  - Off label use [Unknown]
  - Pain [Not Recovered/Not Resolved]
  - Hypotension [Unknown]
  - Cough [Not Recovered/Not Resolved]
  - Compression fracture [Unknown]
  - Infection [Unknown]
  - Pain in extremity [Recovered/Resolved]
  - Pneumonia [Recovering/Resolving]
  - Oxygen saturation decreased [Unknown]
  - Cardiac failure congestive [Recovered/Resolved]
  - Sinusitis [Unknown]
  - Body temperature decreased [Unknown]
  - Body temperature increased [Unknown]
  - White blood cell count increased [Recovered/Resolved]
  - Nausea [Unknown]
  - Fall [Unknown]
  - Respiratory rate increased [Unknown]
  - Heart rate decreased [Unknown]
  - Skin ulcer [Recovering/Resolving]

NARRATIVE: CASE EVENT DATE: 201206
